FAERS Safety Report 14857082 (Version 1)
Quarter: 2018Q2

REPORT INFORMATION
  Report Type: Spontaneous
  Country: CH (occurrence: CH)
  Receive Date: 20180507
  Receipt Date: 20180507
  Transmission Date: 20180711
  Serious: Yes (Death)
  Sender: FDA-Public Use
  Company Number: CH-BEH-2018090255

PATIENT
  Age: 69 Year
  Sex: Male
  Weight: 57 kg

DRUGS (11)
  1. ALVESCO [Concomitant]
     Active Substance: CICLESONIDE
     Dosage: 4 DF, UNK
     Route: 065
  2. VANAIR [Concomitant]
     Active Substance: BENZOYL PEROXIDE\SULFUR
     Dosage: 1 UNK, UNK
     Route: 065
  3. DUPHALAC [Concomitant]
     Active Substance: LACTULOSE
     Dosage: 10 ML, PRN
     Route: 065
  4. LANTUS [Concomitant]
     Active Substance: INSULIN GLARGINE
     Dosage: 10 IU, UNK
     Route: 058
  5. MAGNESIOCARD [Concomitant]
     Active Substance: MAGNESIUM ASPARTATE HYDROCHLORIDE
     Dosage: 5 MG, UNK
     Route: 065
  6. FRESUBIN [Concomitant]
     Active Substance: AMINO ACIDS\DEXTROSE\ELECTROLYTES NOS\SOYBEAN OIL\VITAMINS
     Dosage: 400 ML, UNK
     Route: 065
  7. ALDACTONE [Concomitant]
     Active Substance: SPIRONOLACTONE
     Dosage: 150 MG, UNK
     Route: 065
  8. PANTOPRAZOL [Concomitant]
     Active Substance: PANTOPRAZOLE SODIUM
     Dosage: 80 MG, UNK
     Route: 065
  9. RESPREEZA [Suspect]
     Active Substance: .ALPHA.1-PROTEINASE INHIBITOR HUMAN
     Indication: ALPHA-1 ANTI-TRYPSIN DEFICIENCY
     Dosage: 4 G, QW
     Route: 042
     Dates: start: 20170715, end: 20180213
  10. NOVORAPID [Concomitant]
     Active Substance: INSULIN ASPART
     Indication: BLOOD GLUCOSE NORMAL
     Dosage: 15 IU, QD
     Route: 058
  11. BECOZYM                            /00228301/ [Concomitant]
     Active Substance: CALCIUM PANTOTHENATE\NIACINAMIDE\PYRIDOXINE HYDROCHLORIDE\RIBOFLAVIN\THIAMINE MONONITRATE
     Dosage: 1 DF, QD
     Route: 065

REACTIONS (5)
  - Hepatocellular carcinoma [Fatal]
  - Hepatic failure [Fatal]
  - Ascites [Fatal]
  - Chronic obstructive pulmonary disease [Fatal]
  - Hepatic cirrhosis [Fatal]
